FAERS Safety Report 14799413 (Version 1)
Quarter: 2018Q2

REPORT INFORMATION
  Report Type: Spontaneous
  Country: US (occurrence: US)
  Receive Date: 20180424
  Receipt Date: 20180424
  Transmission Date: 20180711
  Serious: Yes (Life-Threatening, Other)
  Sender: FDA-Public Use
  Company Number: US-WEST-WARD PHARMACEUTICALS CORP.-US-H14001-18-03031

PATIENT
  Age: 75 Year
  Sex: Female

DRUGS (10)
  1. FENTANYL. [Suspect]
     Active Substance: FENTANYL
     Indication: INDUCTION OF ANAESTHESIA
     Route: 013
     Dates: start: 201510
  2. SUCCINYLCHOLINE [Suspect]
     Active Substance: SUCCINYLCHOLINE
     Indication: INDUCTION OF ANAESTHESIA
     Route: 013
     Dates: start: 201510
  3. AMLODIPINE [Concomitant]
     Active Substance: AMLODIPINE BESYLATE
     Indication: HYPERTENSION
     Route: 065
  4. PROPOFOL. [Suspect]
     Active Substance: PROPOFOL
     Indication: INDUCTION OF ANAESTHESIA
     Route: 013
     Dates: start: 201510
  5. VANCOMYCIN [Suspect]
     Active Substance: VANCOMYCIN
     Route: 065
  6. HYDROCHLOROTHIAZIDE. [Concomitant]
     Active Substance: HYDROCHLOROTHIAZIDE
     Indication: HYPERTENSION
     Route: 065
  7. LIDOCAINE. [Suspect]
     Active Substance: LIDOCAINE
     Indication: INDUCTION OF ANAESTHESIA
     Route: 013
     Dates: start: 201510
  8. BUPIVACAINE. [Concomitant]
     Active Substance: BUPIVACAINE
     Indication: NERVE BLOCK
     Route: 065
     Dates: start: 201510
  9. METOPROLOL. [Concomitant]
     Active Substance: METOPROLOL
     Indication: HYPERTENSION
     Route: 065
  10. VANCOMYCIN [Suspect]
     Active Substance: VANCOMYCIN
     Indication: PRODUCT USED FOR UNKNOWN INDICATION
     Dosage: SPACER PLACEMENT
     Route: 065
     Dates: start: 201510

REACTIONS (6)
  - Hypertrophic cardiomyopathy [Unknown]
  - Cardiac arrest [Unknown]
  - Left ventricle outflow tract obstruction [Unknown]
  - Condition aggravated [Unknown]
  - Acute myocardial infarction [Unknown]
  - Anaphylactic reaction [Unknown]

NARRATIVE: CASE EVENT DATE: 201510
